FAERS Safety Report 17337390 (Version 3)
Quarter: 2020Q1

REPORT INFORMATION
  Report Type: Report from Study
  Country: US (occurrence: US)
  Receive Date: 20200129
  Receipt Date: 20200324
  Transmission Date: 20200409
  Serious: No
  Sender: FDA-Public Use
  Company Number: NVSC2020US021959

PATIENT
  Sex: Female

DRUGS (4)
  1. PIQRAY [Suspect]
     Active Substance: ALPELISIB
     Indication: PRODUCT USED FOR UNKNOWN INDICATION
     Route: 048
  2. PIQRAY [Suspect]
     Active Substance: ALPELISIB
     Route: 048
  3. PIQRAY [Suspect]
     Active Substance: ALPELISIB
     Dosage: 250 MG
     Route: 065
  4. PIQRAY [Suspect]
     Active Substance: ALPELISIB
     Route: 048

REACTIONS (7)
  - Somnolence [Unknown]
  - Diarrhoea [Unknown]
  - Decreased appetite [Unknown]
  - Ageusia [Unknown]
  - Rash [Unknown]
  - Weight decreased [Unknown]
  - Blood glucose increased [Unknown]
